FAERS Safety Report 8394246-8 (Version None)
Quarter: 2012Q1

REPORT INFORMATION
  Report Type: 
  Country: None (occurrence: None)
  Receive Date: 20120323
  Receipt Date: 20111020
  Transmission Date: 20120608
  Serious: Yes (Hospitalization)
  Sender: FDA-Public Use
  Company Number: 163-21880-11050825

PATIENT
  Age: 84 Year
  Sex: Female
  Weight: 57.9 kg

DRUGS (23)
  1. PROTONIX [Concomitant]
  2. MAGNESIUM GLUCONATE (MAGNESIUM GLUCONATE) [Concomitant]
  3. PREMARIN [Concomitant]
  4. ZITHROMAX [Concomitant]
  5. COUMADIN [Concomitant]
  6. PREDNISONE TAB [Concomitant]
  7. COREG [Concomitant]
  8. ALLOPURINOL [Concomitant]
  9. GABAPENTIN [Concomitant]
  10. LASIX [Concomitant]
  11. TRAMADOL HCL [Concomitant]
  12. BLOOD (BLOOD AND RELATED PRODUCTS) [Concomitant]
  13. TUMS ULTRA (CALCIUM CARBONATE) [Concomitant]
  14. FLUOXETINE HCL [Concomitant]
  15. REVLIMID [Suspect]
     Indication: MULTIPLE MYELOMA
     Dosage: SEE IMAGE
     Route: 048
     Dates: start: 20090901, end: 20090101
  16. REVLIMID [Suspect]
     Indication: MULTIPLE MYELOMA
     Dosage: SEE IMAGE
     Route: 048
     Dates: start: 20090301, end: 20090101
  17. REVLIMID [Suspect]
     Indication: MULTIPLE MYELOMA
     Dosage: SEE IMAGE
     Route: 048
     Dates: start: 20091201, end: 20110101
  18. REVLIMID [Suspect]
     Indication: MULTIPLE MYELOMA
     Dosage: SEE IMAGE
     Route: 048
     Dates: start: 20110130
  19. REVLIMID [Suspect]
     Indication: MULTIPLE MYELOMA
     Dosage: SEE IMAGE
     Route: 048
     Dates: start: 20070130
  20. VITAMIN D [Concomitant]
  21. PACKED RED BLOOD CELLS (BLOOD CELLS, PACKED HUMAN) [Concomitant]
  22. ANTIBIOTICS (ANTIBIOTICS) [Concomitant]
  23. ARANESP [Concomitant]

REACTIONS (2)
  - THROMBOCYTOPENIA [None]
  - PNEUMONIA [None]
